FAERS Safety Report 7435524-6 (Version None)
Quarter: 2011Q2

REPORT INFORMATION
  Report Type: 
  Country: None (occurrence: None)
  Receive Date: 20110425
  Receipt Date: 20110418
  Transmission Date: 20111010
  Serious: Yes (Hospitalization, Other)
  Sender: FDA-Public Use
  Company Number: FR-BRISTOL-MYERS SQUIBB COMPANY-15686322

PATIENT
  Age: 75 Year
  Sex: Female

DRUGS (11)
  1. CEFPODOXIME PROXETIL [Suspect]
     Route: 048
     Dates: start: 20100222, end: 20100225
  2. FENOFIBRATE [Concomitant]
     Route: 048
  3. VENTOLIN [Concomitant]
  4. NEBCIN [Suspect]
     Route: 048
     Dates: start: 20100222, end: 20100225
  5. MEDROL [Concomitant]
     Route: 048
     Dates: start: 20100222, end: 20100225
  6. LAROXYL [Concomitant]
     Dosage: 1DF= 40MG/ML 10 DROPS/D .
  7. AMLODIPINE BESYLATE [Concomitant]
     Route: 048
  8. COKENZEN [Concomitant]
     Dosage: 1DF= 16MG/12.5MG .
     Route: 048
  9. EUPANTOL [Concomitant]
     Route: 048
  10. SALMETEROL + FLUTICASONE [Concomitant]
  11. COUMADIN [Suspect]
     Route: 048
     Dates: start: 20080101, end: 20100223

REACTIONS (7)
  - PSEUDOMEMBRANOUS COLITIS [None]
  - DIARRHOEA HAEMORRHAGIC [None]
  - HAEMATOMA [None]
  - ANAEMIA [None]
  - OVERDOSE [None]
  - BRONCHITIS [None]
  - RECTAL HAEMORRHAGE [None]
